FAERS Safety Report 7285675-4 (Version None)
Quarter: 2011Q1

REPORT INFORMATION
  Report Type: 
  Country: None (occurrence: None)
  Receive Date: 20110210
  Receipt Date: 20110201
  Transmission Date: 20110831
  Serious: Yes (Life-Threatening)
  Sender: FDA-Public Use
  Company Number: B0695256A

PATIENT
  Age: 43 Year
  Sex: Female

DRUGS (1)
  1. FLOLAN [Suspect]
     Route: 042

REACTIONS (5)
  - DECREASED APPETITE [None]
  - ISOLATED ADRENOCORTICOTROPIC HORMONE DEFICIENCY [None]
  - PITUITARY ENLARGEMENT [None]
  - HYPOPHYSITIS [None]
  - WEIGHT DECREASED [None]
